FAERS Safety Report 20554321 (Version 3)
Quarter: 2022Q4

REPORT INFORMATION
  Report Type: Report from Study
  Country: AR (occurrence: AR)
  Receive Date: 20220304
  Receipt Date: 20221007
  Transmission Date: 20230113
  Serious: Yes (Other)
  Sender: FDA-Public Use
  Company Number: AR-NOVARTISPH-NVSC2019AR031297

PATIENT
  Sex: Male

DRUGS (2)
  1. COSENTYX [Suspect]
     Active Substance: SECUKINUMAB
     Indication: Psoriasis
     Dosage: 300 MG, QMO
     Route: 058
     Dates: start: 20181010
  2. COSENTYX [Suspect]
     Active Substance: SECUKINUMAB
     Indication: Psoriatic arthropathy
     Dosage: 300 MG, QMO
     Route: 058
     Dates: start: 20181011

REACTIONS (25)
  - Psoriatic arthropathy [Recovered/Resolved]
  - Arthralgia [Recovering/Resolving]
  - Psoriatic arthropathy [Recovering/Resolving]
  - Intentional self-injury [Unknown]
  - Skin haemorrhage [Recovering/Resolving]
  - Weight increased [Recovering/Resolving]
  - Inflammation [Unknown]
  - Depression [Unknown]
  - Mental disorder [Unknown]
  - Pain [Unknown]
  - Temperature intolerance [Unknown]
  - Blood cholesterol increased [Unknown]
  - Blood triglycerides increased [Unknown]
  - Decreased immune responsiveness [Unknown]
  - Blood glucose increased [Unknown]
  - Hepatic steatosis [Unknown]
  - Skin injury [Recovering/Resolving]
  - Psoriasis [Recovered/Resolved]
  - Back pain [Unknown]
  - Pruritus [Unknown]
  - Psoriasis [Unknown]
  - Erythema [Unknown]
  - Dry skin [Recovering/Resolving]
  - Product dose omission issue [Unknown]
  - Drug ineffective [Unknown]

NARRATIVE: CASE EVENT DATE: 20200101
